FAERS Safety Report 4528017-7 (Version None)
Quarter: 2004Q4

REPORT INFORMATION
  Report Type: 
  Country: None (occurrence: None)
  Receive Date: 20041215
  Receipt Date: 20041208
  Transmission Date: 20050328
  Serious: Yes (Other)
  Sender: FDA-Public Use
  Company Number: DE-ABBOTT-04P-062-0282775-00

PATIENT
  Sex: Male

DRUGS (2)
  1. ISOPTIN RR PLUS, RETARDKAPSELN [Suspect]
     Indication: DRUG USE FOR UNKNOWN INDICATION
     Route: 048
  2. ISOPTIN RR PLUS, RETARDKAPSELN [Suspect]

REACTIONS (1)
  - LYMPHOEDEMA [None]
